FAERS Safety Report 20696164 (Version 3)
Quarter: 2022Q3

REPORT INFORMATION
  Report Type: Spontaneous
  Country: JP (occurrence: JP)
  Receive Date: 20220411
  Receipt Date: 20220907
  Transmission Date: 20221026
  Serious: Yes (Death, Life-Threatening, Hospitalization, Disabling, Other)
  Sender: FDA-Public Use
  Company Number: JP-PFIZER INC-202101836642

PATIENT
  Age: 48 Year
  Sex: Male
  Weight: 90 kg

DRUGS (12)
  1. INLYTA [Suspect]
     Active Substance: AXITINIB
     Dosage: 5 MG, 2X/DAY
     Route: 048
     Dates: start: 20211213, end: 20220105
  2. INLYTA [Suspect]
     Active Substance: AXITINIB
     Dosage: 4MG, DIVIDED BY TWICE A DAY
     Dates: start: 20220117
  3. INLYTA [Suspect]
     Active Substance: AXITINIB
     Dosage: 5 MG, 2X/DAY
     Route: 048
     Dates: start: 20220221, end: 20220228
  4. BAVENCIO [Suspect]
     Active Substance: AVELUMAB
     Indication: Renal cell carcinoma
     Dosage: 800 MG, DAILY
     Route: 041
     Dates: start: 20211213, end: 20220221
  5. BAVENCIO [Suspect]
     Active Substance: AVELUMAB
     Dosage: UNK
     Route: 042
     Dates: start: 20220124
  6. CALONAL [Concomitant]
     Active Substance: ACETAMINOPHEN
     Indication: Cancer pain
     Dosage: 600 MG, DAILY
     Route: 048
     Dates: start: 20211030, end: 20220325
  7. LOXOPROFEN SODIUM [Concomitant]
     Active Substance: LOXOPROFEN SODIUM
     Dosage: 180 MG, DAILY
     Route: 048
     Dates: start: 20211012, end: 20211118
  8. LOXOPROFEN SODIUM [Concomitant]
     Active Substance: LOXOPROFEN SODIUM
     Dosage: 180 UNK
     Route: 048
     Dates: start: 20220104
  9. DICLOFENAC SODIUM [Concomitant]
     Active Substance: DICLOFENAC SODIUM
     Dosage: 75 MG, 2X/DAY
     Route: 003
     Dates: start: 20211119, end: 20220104
  10. ACETAMINOPHEN\TRAMADOL HYDROCHLORIDE [Concomitant]
     Active Substance: ACETAMINOPHEN\TRAMADOL HYDROCHLORIDE
     Dosage: 3 TABLETS IN 3 DIVIDED DOSES
     Route: 048
     Dates: start: 20211025, end: 20220104
  11. TRAMADOL [Concomitant]
     Active Substance: TRAMADOL
     Dosage: 25 MG, 3X/DAY
     Route: 048
     Dates: start: 20220104, end: 20220325
  12. FENTANYL [Concomitant]
     Active Substance: FENTANYL
     Dosage: 1 MG, DAILY
     Route: 003
     Dates: start: 20220325, end: 20220325

REACTIONS (17)
  - Disseminated intravascular coagulation [Fatal]
  - Acute hepatic failure [Fatal]
  - Liver disorder [Fatal]
  - Neoplasm progression [Fatal]
  - Ocular icterus [Fatal]
  - Aspartate aminotransferase increased [Not Recovered/Not Resolved]
  - Alanine aminotransferase increased [Recovered/Resolved]
  - Abdominal pain upper [Unknown]
  - Pyrexia [Unknown]
  - Blood bilirubin increased [Not Recovered/Not Resolved]
  - Blood alkaline phosphatase increased [Recovering/Resolving]
  - Blood pressure increased [Recovered/Resolved]
  - Gamma-glutamyltransferase increased [Not Recovered/Not Resolved]
  - Proteinuria [Not Recovered/Not Resolved]
  - Stomatitis [Recovering/Resolving]
  - Dysphonia [Recovering/Resolving]
  - Dysphonia [Unknown]

NARRATIVE: CASE EVENT DATE: 20211213
